FAERS Safety Report 7950238-1 (Version None)
Quarter: 2011Q4

REPORT INFORMATION
  Report Type: 
  Country: None (occurrence: None)
  Receive Date: 20111130
  Receipt Date: 20111123
  Transmission Date: 20120403
  Serious: Yes (Hospitalization)
  Sender: FDA-Public Use
  Company Number: DE-PFIZER INC-2011259366

PATIENT
  Sex: Female
  Weight: 98 kg

DRUGS (20)
  1. BLINDED THERAPY [Suspect]
     Dosage: UNK
     Route: 048
     Dates: start: 20110831
  2. SILDENAFIL [Concomitant]
     Dosage: 20 MG, 3X/DAY
     Route: 065
     Dates: start: 20110201
  3. LEVOTHYROXINE SODIUM [Concomitant]
     Dosage: UNK
     Dates: start: 19950101
  4. EMETROL [Concomitant]
     Dosage: UNK
     Dates: start: 20050101
  5. FERROUS SULFATE TAB [Concomitant]
     Dosage: UNK
     Dates: start: 20110815
  6. RIOCIGUAT [Suspect]
     Dosage: 20 G, AS NEEDED
     Route: 061
     Dates: start: 20110914
  7. PARACODIN BITARTRATE TAB [Concomitant]
     Dosage: UNK
     Dates: start: 20100801
  8. DIPROGENT [Suspect]
     Indication: ERYSIPELAS
     Dosage: 20 G, AS NEEDED
     Route: 061
     Dates: start: 20110914
  9. CONCOR [Concomitant]
     Dosage: UNK
     Dates: start: 20110617
  10. BLINDED THERAPY [Suspect]
     Dosage: UNK
     Route: 048
     Dates: start: 20110610
  11. TORSEMIDE [Concomitant]
     Dosage: UNK
     Dates: start: 20110201, end: 20110613
  12. ALDACTONE [Concomitant]
     Dosage: UNK
     Dates: start: 20110301, end: 20110616
  13. MEGACILLIN [Concomitant]
     Route: 065
  14. SILDENAFIL [Suspect]
     Indication: PULMONARY ARTERIAL HYPERTENSION
     Dosage: UNK
     Route: 048
     Dates: start: 20110526, end: 20110830
  15. METOPROLOL [Concomitant]
     Dosage: UNK
     Dates: start: 20020101, end: 20110617
  16. KALINOR [Concomitant]
     Dosage: UNK
     Dates: start: 20110618
  17. MARCUMAR [Concomitant]
     Dosage: UNK
     Dates: start: 20110201
  18. EZETIMIBE [Concomitant]
     Dosage: UNK
     Dates: start: 20050101
  19. CANDESARTAN CILEXETIL [Concomitant]
     Dosage: UNK
     Dates: start: 20050101, end: 20110530
  20. OXYGEN [Concomitant]
     Dosage: UNK
     Dates: start: 20110218

REACTIONS (8)
  - DRY MOUTH [None]
  - CHILLS [None]
  - DYSPEPSIA [None]
  - ABDOMINAL PAIN [None]
  - HYPOTENSION [None]
  - EYELID OEDEMA [None]
  - RIGHT VENTRICULAR FAILURE [None]
  - OEDEMA PERIPHERAL [None]
